FAERS Safety Report 10091016 (Version 3)
Quarter: 2014Q2

REPORT INFORMATION
  Report Type: Report from Study
  Country: US (occurrence: US)
  Receive Date: 20140421
  Receipt Date: 20140508
  Transmission Date: 20141212
  Serious: Yes (Death, Hospitalization)
  Sender: FDA-Public Use
  Company Number: US-ACTELION-A-NJ2014-95988

PATIENT
  Age: 55 Year
  Sex: Female

DRUGS (3)
  1. VENTAVIS [Suspect]
     Indication: PULMONARY ARTERIAL HYPERTENSION
     Dosage: 5 MCG, 7X/DAY
     Route: 055
     Dates: start: 20111214
  2. TRACLEER [Suspect]
     Indication: PULMONARY ARTERIAL HYPERTENSION
     Dosage: UNK
     Route: 048
     Dates: end: 20140411
  3. SILDENAFIL [Concomitant]
     Dosage: UNK

REACTIONS (4)
  - Death [Fatal]
  - Lung transplant [Unknown]
  - Lung disorder [Unknown]
  - Dyspnoea [Unknown]
